FAERS Safety Report 9275907 (Version 1)
Quarter: 2012Q4

REPORT INFORMATION
  Report Type: 
  Country: US (occurrence: None)
  Receive Date: 20121109
  Receipt Date: 20121109
  Transmission Date: 20130627
  Serious: Yes (Hospitalization)
  Sender: FDA-Public Use
  Company Number: 2011S1000685

PATIENT
  Age: 36 Year
  Sex: Female

DRUGS (2)
  1. CUBICIN [Suspect]
     Indication: OSTEOMYELITIS
     Dates: start: 20110918
  2. ZOSYN [Concomitant]

REACTIONS (9)
  - Diarrhoea [None]
  - Vomiting [None]
  - Anaemia [None]
  - Back pain [None]
  - Pain in extremity [None]
  - Musculoskeletal pain [None]
  - Rash morbilliform [None]
  - Rash generalised [None]
  - White blood cell count decreased [None]
